FAERS Safety Report 10761350 (Version 2)
Quarter: 2015Q2

REPORT INFORMATION
  Report Type: Spontaneous
  Country: IT (occurrence: IT)
  Receive Date: 20150204
  Receipt Date: 20150501
  Transmission Date: 20150821
  Serious: Yes (Hospitalization)
  Sender: FDA-Public Use
  Company Number: US-ASTRAZENECA-2015SE10604

PATIENT
  Age: 76 Year
  Sex: Female

DRUGS (3)
  1. BLOPRESID [Suspect]
     Active Substance: CANDESARTAN CILEXETIL\HYDROCHLOROTHIAZIDE
     Indication: HYPERTENSION
     Dosage: 16/12.5 MG, 1 DF DAILY
     Route: 048
     Dates: start: 20120201, end: 20150126
  2. LUMIGAN [Concomitant]
     Active Substance: BIMATOPROST
  3. MINIAS [Concomitant]
     Active Substance: LORMETAZEPAM
     Route: 048

REACTIONS (1)
  - Hypokalaemia [Recovering/Resolving]

NARRATIVE: CASE EVENT DATE: 20150126
